FAERS Safety Report 18894447 (Version 1)
Quarter: 2021Q1

REPORT INFORMATION
  Report Type: Spontaneous
  Country: TW (occurrence: TW)
  Receive Date: 20210215
  Receipt Date: 20210215
  Transmission Date: 20210420
  Serious: Yes (Other)
  Sender: FDA-Public Use
  Company Number: TW-TAKEDA-2021TUS007895

PATIENT
  Age: 68 Year
  Sex: Female

DRUGS (1)
  1. 422 (ANAGRELIDE) [Suspect]
     Active Substance: ANAGRELIDE
     Indication: ESSENTIAL THROMBOCYTHAEMIA
     Route: 065

REACTIONS (2)
  - Ischaemic stroke [Recovering/Resolving]
  - Cerebral artery stenosis [Recovering/Resolving]
